FAERS Safety Report 7213048-9 (Version None)
Quarter: 2011Q1

REPORT INFORMATION
  Report Type: 
  Country: None (occurrence: None)
  Receive Date: 20110106
  Receipt Date: 20101228
  Transmission Date: 20110831
  Serious: Yes (Hospitalization)
  Sender: FDA-Public Use
  Company Number: B0691140A

PATIENT
  Sex: Female

DRUGS (7)
  1. NEXIUM [Suspect]
     Indication: PRODUCT USED FOR UNKNOWN INDICATION
     Dates: start: 20091210, end: 20091210
  2. ZELITREX [Suspect]
     Indication: PRODUCT USED FOR UNKNOWN INDICATION
     Route: 065
     Dates: start: 20091210, end: 20091210
  3. SEROPLEX [Suspect]
     Indication: PRODUCT USED FOR UNKNOWN INDICATION
     Dates: start: 20091210, end: 20091210
  4. MEPRONIZINE [Suspect]
     Indication: PRODUCT USED FOR UNKNOWN INDICATION
     Dosage: 39TAB PER DAY
     Route: 065
     Dates: start: 20091210, end: 20091210
  5. DEPAKOTE [Suspect]
     Indication: PRODUCT USED FOR UNKNOWN INDICATION
     Dates: start: 20091210, end: 20091210
  6. IMOVANE [Suspect]
     Indication: PRODUCT USED FOR UNKNOWN INDICATION
     Dosage: 42TAB PER DAY
     Route: 065
     Dates: start: 20091210, end: 20091210
  7. TIAPRIDAL [Suspect]
     Indication: PRODUCT USED FOR UNKNOWN INDICATION
     Dates: start: 20091210, end: 20091210

REACTIONS (7)
  - MYDRIASIS [None]
  - RHABDOMYOLYSIS [None]
  - HYPOTENSION [None]
  - TOXICITY TO VARIOUS AGENTS [None]
  - BRADYPNOEA [None]
  - COMA [None]
  - HYPOTHERMIA [None]
